FAERS Safety Report 11695960 (Version 1)
Quarter: 2015Q4

REPORT INFORMATION
  Report Type: Spontaneous
  Country: US (occurrence: None)
  Receive Date: 20151103
  Receipt Date: 20151103
  Transmission Date: 20160304
  Serious: Yes (Life-Threatening, Hospitalization, Disabling)
  Sender: FDA-Public Use
  Company Number: None

PATIENT
  Age: 74 Year
  Sex: Male
  Weight: 90.72 kg

DRUGS (1)
  1. AMIODARONE 400 MG DAILY [Suspect]
     Active Substance: AMIODARONE
     Indication: ATRIAL FIBRILLATION
     Dosage: HE WAS TAPERED
     Route: 048
     Dates: start: 20150828, end: 20151005

REACTIONS (4)
  - Dyspnoea [None]
  - Pulmonary fibrosis [None]
  - Cough [None]
  - Dyspnoea exertional [None]

NARRATIVE: CASE EVENT DATE: 20151016
